FAERS Safety Report 9241389 (Version 1)
Quarter: 2013Q1

REPORT INFORMATION
  Report Type: Spontaneous
  Country: US (occurrence: None)
  Receive Date: 20121120
  Receipt Date: 20121120
  Transmission Date: 20140127
  Serious: No
  Sender: FDA-Public Use
  Company Number: 1000038077

PATIENT
  Age: 47 Year
  Sex: Female

DRUGS (4)
  1. VIIBRYD [Suspect]
     Indication: INSOMNIA
     Route: 048
     Dates: start: 201205, end: 2012
  2. VIIBRYD [Suspect]
     Indication: INSOMNIA
     Route: 048
     Dates: start: 2012, end: 201208
  3. MAXZIDE [Concomitant]
  4. LIPITOR (ATORVASTATIN CALCIUM) (ATORVASTATIN CALCIUM) [Concomitant]

REACTIONS (3)
  - Paranoia [None]
  - Hallucination [None]
  - Off label use [None]
